FAERS Safety Report 4353191-5 (Version None)
Quarter: 2004Q2

REPORT INFORMATION
  Report Type: 
  Country: None (occurrence: None)
  Receive Date: 20040503
  Receipt Date: 20040503
  Transmission Date: 20050107
  Serious: Yes (Hospitalization)
  Sender: FDA-Public Use
  Company Number: None

PATIENT
  Age: 52 Year
  Sex: Female

DRUGS (6)
  1. PSEUDOEPHEDRINE HCL [Suspect]
     Indication: SINUS CONGESTION
  2. ACETAMINOPHEN [Concomitant]
  3. BUSPIRONE HCL [Concomitant]
  4. INSULIN [Concomitant]
  5. VENLAFAXINE [Concomitant]
  6. TEMAZEPAM [Concomitant]

REACTIONS (5)
  - CHEST PAIN [None]
  - DRUG ABUSER [None]
  - HYPERTENSION [None]
  - PALPITATIONS [None]
  - SINUSITIS [None]
